FAERS Safety Report 9801983 (Version 2)
Quarter: 2014Q1

REPORT INFORMATION
  Report Type: Spontaneous
  Country: US (occurrence: US)
  Receive Date: 20140107
  Receipt Date: 20140107
  Transmission Date: 20141002
  Serious: Yes (Hospitalization)
  Sender: FDA-Public Use
  Company Number: US-B.I. PHARMACEUTICALS,INC./RIDGEFIELD-2013-BI-22484BP

PATIENT
  Sex: Male
  Weight: 86.18 kg

DRUGS (9)
  1. PRADAXA [Suspect]
     Indication: ATRIAL FIBRILLATION
     Dosage: 300 MG
     Dates: start: 20110528, end: 20110815
  2. MULTAQ [Concomitant]
     Dosage: 800 MG
  3. VICTOZA [Concomitant]
     Dosage: 1.8 MG
  4. METFORMIN [Concomitant]
     Dosage: 1500 MG
  5. SIMVASTATIN [Concomitant]
     Dosage: 20 MG
  6. DIGOXIN [Concomitant]
     Dosage: 0.25 MG
  7. VALSARTAN [Concomitant]
     Dosage: 250 MG
  8. MULTIVITAMIN [Concomitant]
  9. TYLENOL [Concomitant]

REACTIONS (2)
  - Gastrointestinal haemorrhage [Unknown]
  - Anaemia [Unknown]
